FAERS Safety Report 5244126-1 (Version None)
Quarter: 2007Q1

REPORT INFORMATION
  Report Type: 
  Country: None (occurrence: None)
  Receive Date: 20070216
  Receipt Date: 20070206
  Transmission Date: 20070707
  Serious: Yes (Hospitalization)
  Sender: FDA-Public Use
  Company Number: 2007JP000493

PATIENT
  Age: 68 Year
  Sex: Male

DRUGS (6)
  1. VESICARE [Suspect]
     Indication: HYPERTONIC BLADDER
     Dosage: 5 MG, UID/QD;ORAL
     Route: 048
     Dates: start: 20070106, end: 20070130
  2. OLMETEC (OLMESARTAN MEDOXOMIL) [Concomitant]
  3. FLUITRAN (TRICHLORMETHIAZIDE) [Concomitant]
  4. LANSOPRAZOLE [Concomitant]
  5. HARNAL (TAMSULOSIN) ORODISPERSABLE CR TABLET [Concomitant]
  6. ASPIRIN [Concomitant]

REACTIONS (3)
  - NEUROGENIC BLADDER [None]
  - POSTRENAL FAILURE [None]
  - URINARY RETENTION [None]
